FAERS Safety Report 23198763 (Version 1)
Quarter: 2023Q4

REPORT INFORMATION
  Report Type: Report from Study
  Country: RU (occurrence: RU)
  Receive Date: 20231117
  Receipt Date: 20231117
  Transmission Date: 20240109
  Serious: Yes (Other)
  Sender: FDA-Public Use
  Company Number: RU-JNJFOC-20231134086

PATIENT

DRUGS (3)
  1. DARATUMUMAB [Suspect]
     Active Substance: DARATUMUMAB
     Indication: Acute myeloid leukaemia refractory
     Route: 041
  2. VENETOCLAX [Suspect]
     Active Substance: VENETOCLAX
     Indication: Acute myeloid leukaemia refractory
     Route: 048
  3. PLERIXAFOR [Suspect]
     Active Substance: PLERIXAFOR
     Indication: Acute myeloid leukaemia refractory
     Route: 058

REACTIONS (9)
  - Infusion related reaction [Unknown]
  - Angioedema [Unknown]
  - Bronchospasm [Unknown]
  - Visual impairment [Unknown]
  - Hypertension [Unknown]
  - Dizziness [Unknown]
  - Arthropathy [Unknown]
  - Urticaria [Unknown]
  - Off label use [Unknown]
